FAERS Safety Report 9481877 (Version 1)
Quarter: 2013Q3

REPORT INFORMATION
  Report Type: Spontaneous
  Country: CH (occurrence: CH)
  Receive Date: 20130828
  Receipt Date: 20130828
  Transmission Date: 20140515
  Serious: Yes (Other)
  Sender: FDA-Public Use
  Company Number: CH-JNJFOC-20130814769

PATIENT
  Age: 10 Year
  Sex: Male

DRUGS (8)
  1. PARACETAMOL [Suspect]
     Indication: ABDOMINAL PAIN UPPER
     Route: 065
  2. PARACETAMOL [Suspect]
     Indication: DYSPHAGIA
     Route: 065
  3. PARACETAMOL [Suspect]
     Indication: OEDEMA
     Route: 065
  4. PARACETAMOL [Suspect]
     Indication: PENILE OEDEMA
     Route: 065
  5. ESOMEPRAZOLE [Concomitant]
     Indication: ABDOMINAL PAIN UPPER
     Route: 065
  6. ESOMEPRAZOLE [Concomitant]
     Indication: DYSPHAGIA
     Route: 065
  7. ESOMEPRAZOLE [Concomitant]
     Indication: PENILE OEDEMA
     Route: 065
  8. ESOMEPRAZOLE [Concomitant]
     Indication: OEDEMA
     Route: 065

REACTIONS (6)
  - Penile oedema [Recovering/Resolving]
  - Palatal oedema [Recovering/Resolving]
  - Dysphagia [Recovering/Resolving]
  - Oedema [Recovering/Resolving]
  - Abdominal pain upper [Recovering/Resolving]
  - Urticaria [Recovering/Resolving]
